FAERS Safety Report 25190514 (Version 1)
Quarter: 2025Q2

REPORT INFORMATION
  Report Type: Spontaneous
  Country: DE (occurrence: DE)
  Receive Date: 20250411
  Receipt Date: 20250411
  Transmission Date: 20250716
  Serious: Yes (Other)
  Sender: ABBVIE
  Company Number: None

PATIENT
  Age: 49 Year
  Sex: Female

DRUGS (7)
  1. FOSCARBIDOPA\FOSLEVODOPA [Suspect]
     Active Substance: FOSCARBIDOPA\FOSLEVODOPA
     Indication: Parkinson^s disease
     Route: 058
     Dates: start: 20240808
  2. BISOPROLOL [Concomitant]
     Active Substance: BISOPROLOL
     Indication: Migraine prophylaxis
     Route: 048
  3. LEVOTHYROXINE [Concomitant]
     Active Substance: LEVOTHYROXINE
     Indication: Thyroid disorder
     Route: 048
  4. XADAGO [Concomitant]
     Active Substance: SAFINAMIDE MESYLATE
     Indication: Parkinson^s disease
     Route: 048
  5. DARIFENACIN [Concomitant]
     Active Substance: DARIFENACIN
     Indication: Urge incontinence
     Route: 048
  6. VITAMIN B12 [Concomitant]
     Active Substance: CYANOCOBALAMIN
     Indication: Vitamin B12 deficiency
     Route: 048
  7. FOLIC ACID [Concomitant]
     Active Substance: FOLIC ACID
     Indication: Folate deficiency
     Route: 048

REACTIONS (12)
  - Abdominal wall abscess [Not Recovered/Not Resolved]
  - Infusion site urticaria [Unknown]
  - Inflammation [Recovered/Resolved with Sequelae]
  - Induration [Recovered/Resolved with Sequelae]
  - Infusion site calcification [Recovered/Resolved with Sequelae]
  - Pain [Recovered/Resolved with Sequelae]
  - Liquid product physical issue [Unknown]
  - Infusion site reaction [Recovered/Resolved with Sequelae]
  - Infusion site swelling [Unknown]
  - Infusion site pain [Unknown]
  - Infusion site discomfort [Unknown]
  - Infusion site erythema [Unknown]

NARRATIVE: CASE EVENT DATE: 20240909
